FAERS Safety Report 19409029 (Version 1)
Quarter: 2021Q2

REPORT INFORMATION
  Report Type: Spontaneous
  Country: CN (occurrence: CN)
  Receive Date: 20210613
  Receipt Date: 20210613
  Transmission Date: 20210717
  Serious: Yes (Other)
  Sender: FDA-Public Use
  Company Number: CN-BAXTER-2021BAX015100

PATIENT
  Age: 66 Year
  Sex: Male
  Weight: 50 kg

DRUGS (5)
  1. 0.9% SODIUM CHLORIDE INJECTION [Suspect]
     Active Substance: SODIUM CHLORIDE
     Indication: MEDICATION DILUTION
     Dosage: ENDOXAN 1G + NS 100ML
     Route: 041
     Dates: start: 20210504, end: 20210504
  2. 0.9% SODIUM CHLORIDE INJECTION [Suspect]
     Active Substance: SODIUM CHLORIDE
     Dosage: VINDESINE SULFATE 4MG + NS100ML
     Route: 041
     Dates: start: 20210504, end: 20210504
  3. VINDESINE SULFATE [Suspect]
     Active Substance: VINDESINE SULFATE
     Indication: DIFFUSE LARGE B-CELL LYMPHOMA
     Dosage: VINDESINE SULFATE 4MG + NS100ML
     Route: 041
     Dates: start: 20210504, end: 20210504
  4. ENDOXAN [Suspect]
     Active Substance: CYCLOPHOSPHAMIDE
     Indication: DIFFUSE LARGE B-CELL LYMPHOMA
     Dosage: ENDOXAN 1G + NS 100ML
     Route: 041
     Dates: start: 20210504, end: 20210504
  5. HANLIKANG [Suspect]
     Active Substance: RITUXIMAB
     Indication: DIFFUSE LARGE B-CELL LYMPHOMA
     Route: 041
     Dates: start: 20210503, end: 20210503

REACTIONS (1)
  - Myelosuppression [Recovering/Resolving]

NARRATIVE: CASE EVENT DATE: 20210513
